FAERS Safety Report 9241868 (Version 1)
Quarter: 2013Q2

REPORT INFORMATION
  Report Type: Spontaneous
  Country: CH (occurrence: CH)
  Receive Date: 20130419
  Receipt Date: 20130419
  Transmission Date: 20140414
  Serious: Yes (Other)
  Sender: FDA-Public Use
  Company Number: CH-BRISTOL-MYERS SQUIBB COMPANY-18772657

PATIENT
  Age: 73 Year
  Sex: Male

DRUGS (3)
  1. YERVOY [Suspect]
     Dates: start: 201103, end: 201105
  2. VEMURAFENIB [Suspect]
     Dates: start: 201107, end: 201111
  3. DACARBAZINE [Suspect]
     Dates: start: 201011, end: 201101

REACTIONS (1)
  - Myelodysplastic syndrome [Unknown]
